FAERS Safety Report 6076251-X (Version None)
Quarter: 2009Q1

REPORT INFORMATION
  Report Type: 
  Country: None (occurrence: None)
  Receive Date: 20090212
  Receipt Date: 20090206
  Transmission Date: 20090719
  Serious: Yes (Hospitalization)
  Sender: FDA-Public Use
  Company Number: US-GILEAD-2009-0019711

PATIENT
  Sex: Male

DRUGS (10)
  1. LETAIRIS [Suspect]
     Indication: SCLERODERMA
     Route: 048
     Dates: start: 20081212, end: 20081215
  2. VIAGRA [Concomitant]
  3. LASIX [Concomitant]
  4. COZAAR [Concomitant]
  5. COREG [Concomitant]
  6. NIFEDIPINE [Concomitant]
  7. PLAVIX [Concomitant]
  8. SIMVASTATIN [Concomitant]
  9. GLIPIZIDE [Concomitant]
  10. OMEPRAZOLE [Concomitant]

REACTIONS (3)
  - ANAEMIA [None]
  - OEDEMA PERIPHERAL [None]
  - RIGHT VENTRICULAR FAILURE [None]
